FAERS Safety Report 6142003-5 (Version None)
Quarter: 2009Q2

REPORT INFORMATION
  Report Type: 
  Country: None (occurrence: None)
  Receive Date: 20090402
  Receipt Date: 20090401
  Transmission Date: 20091009
  Serious: No
  Sender: FDA-Public Use
  Company Number: US-B.I. PHARMACEUTICALS,INC./RIDGEFIELD-2009-BP-02154BP

PATIENT
  Sex: Male

DRUGS (6)
  1. COMBIVENT [Suspect]
  2. SPIRIVA [Suspect]
     Indication: CHRONIC OBSTRUCTIVE PULMONARY DISEASE
     Dosage: 18MCG
     Route: 055
     Dates: start: 20050101
  3. IPRATROPIUM BROMIDE [Suspect]
     Route: 055
  4. TRIAM HCTZ (DYAZIDE) [Concomitant]
     Indication: HYPERTENSION
     Dosage: 37.5MG
     Route: 048
     Dates: start: 19880101
  5. ZANTAC [Concomitant]
     Indication: DYSPEPSIA
  6. ALBUTEROL [Concomitant]

REACTIONS (2)
  - MUSCLE SPASMS [None]
  - MYALGIA [None]
